FAERS Safety Report 4654418-2 (Version None)
Quarter: 2005Q2

REPORT INFORMATION
  Report Type: 
  Country: None (occurrence: None)
  Receive Date: 20050404
  Receipt Date: 20050110
  Transmission Date: 20051028
  Serious: No
  Sender: FDA-Public Use
  Company Number: USA050187844

PATIENT
  Age: 60 Year
  Sex: Female
  Weight: 121 kg

DRUGS (6)
  1. CYMBALTA [Suspect]
     Indication: DEPRESSION
     Dosage: 60 MG AT NOON
     Dates: start: 20041001, end: 20050106
  2. LORAZEPAM [Concomitant]
  3. TRAZODONE HCL [Concomitant]
  4. CELEXA [Concomitant]
  5. DETROL LA [Concomitant]
  6. CYTOMEL (LIOTHYROXINE SODIUM) [Concomitant]

REACTIONS (5)
  - ABDOMINAL PAIN UPPER [None]
  - FEELING ABNORMAL [None]
  - INSOMNIA [None]
  - MUSCLE TWITCHING [None]
  - THYROID DISORDER [None]
